FAERS Safety Report 19849400 (Version 1)
Quarter: 2021Q3

REPORT INFORMATION
  Report Type: Spontaneous
  Country: FR (occurrence: FR)
  Receive Date: 20210918
  Receipt Date: 20210918
  Transmission Date: 20211014
  Serious: Yes (Hospitalization)
  Sender: FDA-Public Use
  Company Number: FR-ACCORD-238807

PATIENT
  Age: 65 Year
  Sex: Male
  Weight: 63 kg

DRUGS (6)
  1. ATROPINE. [Concomitant]
     Active Substance: ATROPINE
     Indication: CHEMOTHERAPY SIDE EFFECT PROPHYLAXIS
     Route: 042
     Dates: start: 20210621, end: 20210621
  2. SODIUM LEVOFOLINATE [Concomitant]
     Active Substance: LEVOLEUCOVORIN DISODIUM
     Indication: CHEMOTHERAPY SIDE EFFECT PROPHYLAXIS
     Dosage: STRENGTH: 50 MG / ML
     Route: 042
     Dates: start: 20210621, end: 20210621
  3. OXALIPLATIN ACCORD [Concomitant]
     Active Substance: OXALIPLATIN
     Indication: ADENOCARCINOMA PANCREAS
     Dosage: STRENGTH:5 MG / ML
     Route: 042
     Dates: start: 20210621, end: 20210621
  4. ONDANSETRON. [Concomitant]
     Active Substance: ONDANSETRON
     Indication: CHEMOTHERAPY SIDE EFFECT PROPHYLAXIS
     Dosage: STRENGTH : 8 MG
     Route: 048
     Dates: start: 20210621, end: 20210621
  5. IRINOTECAN [Suspect]
     Active Substance: IRINOTECAN
     Indication: ADENOCARCINOMA PANCREAS
     Dosage: STRENGTH:20 MG / ML
     Route: 041
     Dates: start: 20210621, end: 20210621
  6. METHYLPREDNISOLONE. [Concomitant]
     Active Substance: METHYLPREDNISOLONE
     Indication: CHEMOTHERAPY SIDE EFFECT PROPHYLAXIS
     Route: 042
     Dates: start: 20210621, end: 20210621

REACTIONS (1)
  - Infusion related reaction [Recovered/Resolved]

NARRATIVE: CASE EVENT DATE: 20210621
